FAERS Safety Report 7146859 (Version 39)
Quarter: 2014Q2

REPORT INFORMATION
  Report Type: Spontaneous
  Country: US (occurrence: US)
  Receive Date: 20091012
  Receipt Date: 20140428
  Transmission Date: 20141212
  Serious: Yes (Hospitalization, Other)
  Sender: FDA-Public Use
  Company Number: PHEH2009US12471

PATIENT
  Sex: Female

DRUGS (39)
  1. AREDIA [Suspect]
     Indication: OSTEOPOROSIS
     Dosage: 90 MG, QMO
     Route: 042
     Dates: start: 20000124
  2. AREDIA [Suspect]
     Indication: NEOPLASM MALIGNANT
     Dosage: 30 MG, UNK
  3. ZOMETA [Suspect]
     Dosage: UNK UKN, UNK
     Route: 042
  4. FASLODEX [Concomitant]
     Dates: start: 200210
  5. CARBOPLATIN [Concomitant]
  6. GEMZAR [Concomitant]
  7. LORAZEPAM [Concomitant]
  8. BENADRYL ALLERGY [Concomitant]
     Dosage: 1 DF, QHS PRN
     Route: 048
  9. NAPROSYN [Concomitant]
  10. OXYCODONE [Concomitant]
  11. NEURONTIN [Concomitant]
     Dosage: 1 DF, PRN
     Route: 048
  12. PROCHLORPERAZINE MALEATE [Concomitant]
     Dosage: 1 DF, PRN
     Route: 048
  13. DEXAMETHASONE SODIUM PHOSPHATE [Concomitant]
     Dosage: 2 DRP, BID PRN
     Route: 047
  14. HYDROCHLOROTHIAZIDE [Concomitant]
  15. FENTANYL [Concomitant]
  16. VERSED [Concomitant]
  17. WELLBUTRIN [Concomitant]
  18. ACYCLOVIR [Concomitant]
  19. DEMEROL [Concomitant]
     Route: 030
  20. CYTOXAN [Concomitant]
  21. METHOTREXATE [Concomitant]
  22. 5-FLUOROURACIL [Concomitant]
  23. RALOXIFENE [Concomitant]
  24. ZOFRAN [Concomitant]
     Route: 042
  25. PREDNISONE [Concomitant]
  26. BIAXIN [Concomitant]
  27. HYDROXYZINE [Concomitant]
  28. ROXICET [Concomitant]
  29. BETAMETHASONE [Concomitant]
  30. NIZORAL [Concomitant]
  31. ZYRTEC [Concomitant]
  32. AUGMENTIN [Concomitant]
  33. COLACE [Concomitant]
  34. MIRALAX [Concomitant]
     Dosage: 17 G, QD
  35. FLEET ENEMA [Concomitant]
  36. GLYCERIN [Concomitant]
  37. NEXIUM [Concomitant]
  38. DARVOCET-N [Concomitant]
  39. XGEVA [Concomitant]

REACTIONS (172)
  - Osteonecrosis of jaw [Unknown]
  - Anxiety [Unknown]
  - General physical health deterioration [Unknown]
  - Pain [Unknown]
  - Emotional distress [Unknown]
  - Deformity [Unknown]
  - Infection [Unknown]
  - Physical disability [Unknown]
  - Road traffic accident [Unknown]
  - Back pain [Unknown]
  - Spinal osteoarthritis [Unknown]
  - Metastases to pelvis [Unknown]
  - Metastases to spine [Unknown]
  - Metastases to lung [Unknown]
  - Hepatic cyst [Unknown]
  - Renal cyst [Unknown]
  - Diverticulum [Unknown]
  - Osteolysis [Unknown]
  - Bone pain [Unknown]
  - Essential hypertension [Unknown]
  - Eye allergy [Unknown]
  - Eye swelling [Not Recovered/Not Resolved]
  - Duodenogastric reflux [Unknown]
  - Cellulitis [Unknown]
  - Haematochezia [Unknown]
  - Herpes zoster [Recovering/Resolving]
  - Candida infection [Unknown]
  - Haemorrhoids [Unknown]
  - Hypermetabolism [Unknown]
  - Nasal ulcer [Unknown]
  - Anaemia [Unknown]
  - Flank pain [Unknown]
  - Coronary artery disease [Unknown]
  - Dyshidrotic eczema [Unknown]
  - Dyspepsia [Unknown]
  - Large intestine polyp [Unknown]
  - Urticaria [Unknown]
  - Cellulitis orbital [Unknown]
  - Meningitis [Unknown]
  - Asthma [Unknown]
  - Depression [Unknown]
  - Chest pain [Unknown]
  - Periorbital cellulitis [Recovering/Resolving]
  - Erythema of eyelid [Unknown]
  - Conjunctivitis viral [Unknown]
  - Eye pain [Not Recovered/Not Resolved]
  - Vitreous floaters [Unknown]
  - Seasonal allergy [Unknown]
  - Migraine [Unknown]
  - Abdominal discomfort [Unknown]
  - Ear pain [Unknown]
  - Facial pain [Unknown]
  - Chronic sinusitis [Unknown]
  - Myofascial pain syndrome [Unknown]
  - Nasal vestibulitis [Unknown]
  - Sleep disorder [Unknown]
  - Swelling face [Unknown]
  - Gingivitis [Unknown]
  - Angioedema [Unknown]
  - Hip fracture [Unknown]
  - Neuropathy peripheral [Unknown]
  - Metastases to liver [Unknown]
  - Metastases to lymph nodes [Unknown]
  - Cataract cortical [Unknown]
  - Osteitis deformans [Unknown]
  - Blepharochalasis [Unknown]
  - Astigmatism [Unknown]
  - Hypermetropia [Unknown]
  - Presbyopia [Unknown]
  - Soft tissue disorder [Unknown]
  - Hip deformity [Unknown]
  - Dermatitis [Unknown]
  - Skin exfoliation [Unknown]
  - Leukopenia [Unknown]
  - Pleural fibrosis [Unknown]
  - Bone erosion [Unknown]
  - Skin lesion [Unknown]
  - Atrophy [Unknown]
  - Bursitis [Unknown]
  - Personality disorder [Unknown]
  - Scleroderma [Unknown]
  - Peripheral vascular disorder [Unknown]
  - Pigmentation disorder [Unknown]
  - Seborrhoeic keratosis [Unknown]
  - Colitis [Unknown]
  - Oral discomfort [Unknown]
  - Constipation [Unknown]
  - Gait disturbance [Unknown]
  - Arteriosclerosis coronary artery [Unknown]
  - Nephrolithiasis [Unknown]
  - Intervertebral disc protrusion [Unknown]
  - Upper respiratory tract infection [Unknown]
  - Vertebral foraminal stenosis [Unknown]
  - Vertebral lesion [Unknown]
  - Lymphadenopathy mediastinal [Recovering/Resolving]
  - Pleural effusion [Recovering/Resolving]
  - Pleural disorder [Recovering/Resolving]
  - Pulmonary mass [Recovering/Resolving]
  - Bone lesion [Unknown]
  - Soft tissue injury [Unknown]
  - Arthropathy [Unknown]
  - Osteoarthritis [Unknown]
  - Metastases to the mediastinum [Unknown]
  - Gastric ulcer [Unknown]
  - Confusional state [Unknown]
  - Oedema peripheral [Unknown]
  - Hiatus hernia [Unknown]
  - Pathological fracture [Unknown]
  - Sexually transmitted disease [Unknown]
  - Rhinitis [Unknown]
  - Metastases to bone [Unknown]
  - Limb asymmetry [Unknown]
  - Pain in jaw [Unknown]
  - Cardiac disorder [Unknown]
  - Hepatic steatosis [Unknown]
  - Gastrooesophageal reflux disease [Unknown]
  - Hypoaesthesia oral [Unknown]
  - Exophthalmos [Unknown]
  - Cerebral atrophy [Unknown]
  - Cerebellar atrophy [Unknown]
  - Tendon disorder [Unknown]
  - Pleural neoplasm [Unknown]
  - Hypoxia [Unknown]
  - Respiratory distress [Unknown]
  - Dyspnoea [Unknown]
  - Rales [Unknown]
  - Pain in extremity [Unknown]
  - Asthenia [Unknown]
  - Cough [Unknown]
  - Arthralgia [Unknown]
  - Dermatitis atopic [Unknown]
  - Hypokinesia [Unknown]
  - Local swelling [Unknown]
  - Hypertension [Unknown]
  - Respiratory tract congestion [Unknown]
  - Malaise [Unknown]
  - Thoracic outlet syndrome [Unknown]
  - Insomnia [Unknown]
  - Metastatic neoplasm [Unknown]
  - Fatigue [Unknown]
  - Pulmonary fibrosis [Unknown]
  - Hilar lymphadenopathy [Unknown]
  - Atelectasis [Unknown]
  - Hepatomegaly [Unknown]
  - Chronic obstructive pulmonary disease [Unknown]
  - Breast cancer metastatic [Unknown]
  - Skin ulcer [Recovering/Resolving]
  - Lymphadenopathy [Unknown]
  - Eczema [Unknown]
  - Erythema [Unknown]
  - Skin burning sensation [Unknown]
  - Pruritus [Unknown]
  - Rash generalised [Unknown]
  - Hot flush [Unknown]
  - Gastrointestinal sounds abnormal [Unknown]
  - Lung hyperinflation [Unknown]
  - Lung consolidation [Unknown]
  - Post-traumatic stress disorder [Unknown]
  - Injury [Unknown]
  - Adverse drug reaction [Unknown]
  - Cardiomegaly [Unknown]
  - Femur fracture [Unknown]
  - Rash macular [Unknown]
  - Wound [Unknown]
  - Rash [Unknown]
  - Skin infection [Unknown]
  - Ovarian cyst [Unknown]
  - Osteosclerosis [Unknown]
  - Orbital oedema [Unknown]
  - Cerebral small vessel ischaemic disease [Unknown]
  - Disorder of orbit [Unknown]
  - Eyelid oedema [Unknown]
